FAERS Safety Report 22245895 (Version 2)
Quarter: 2023Q2

REPORT INFORMATION
  Report Type: Report from Study
  Country: US (occurrence: US)
  Receive Date: 20230424
  Receipt Date: 20230427
  Transmission Date: 20230722
  Serious: No
  Sender: FDA-Public Use
  Company Number: US-002147023-NVSC2023US089872

PATIENT
  Sex: Male

DRUGS (7)
  1. CLINDAMYCIN [Suspect]
     Active Substance: CLINDAMYCIN
     Indication: Hidradenitis
     Dosage: 1 %
     Route: 061
  2. DOXYCYCLINE [Suspect]
     Active Substance: DOXYCYCLINE
     Indication: Hidradenitis
     Dosage: 100 MG
     Route: 048
  3. MINOXIDIL [Suspect]
     Active Substance: MINOXIDIL
     Indication: Hidradenitis
     Dosage: UNK
     Route: 065
  4. ACCUTANE [Suspect]
     Active Substance: ISOTRETINOIN
     Indication: Hidradenitis
     Dosage: UNK
     Route: 065
  5. BACTRIM [Concomitant]
     Active Substance: SULFAMETHOXAZOLE\TRIMETHOPRIM
     Indication: Product used for unknown indication
     Dosage: 10 DAYS
     Route: 065
  6. CEPHALEXIN [Concomitant]
     Active Substance: CEPHALEXIN
     Indication: Product used for unknown indication
     Dosage: UNK
     Route: 065
  7. CORTISPORIN [Concomitant]
     Active Substance: BACITRACIN ZINC\HYDROCORTISONE\NEOMYCIN SULFATE\POLYMYXIN B SULFATE
     Indication: Product used for unknown indication
     Dosage: UNK
     Route: 065

REACTIONS (18)
  - Dermatitis acneiform [Unknown]
  - Skin plaque [Unknown]
  - Papule [Unknown]
  - Pustule [Unknown]
  - Molluscum contagiosum [Unknown]
  - Pruritus [Unknown]
  - Impetigo [Unknown]
  - Cyst [Unknown]
  - Nodule [Unknown]
  - Haematoma [Unknown]
  - Abscess [Unknown]
  - Folliculitis [Unknown]
  - Dermatitis [Unknown]
  - Skin lesion [Unknown]
  - Dry skin [Unknown]
  - Skin irritation [Unknown]
  - Drug ineffective [Unknown]
  - Product use in unapproved indication [Unknown]
